FAERS Safety Report 18153515 (Version 3)
Quarter: 2020Q3

REPORT INFORMATION
  Report Type: Spontaneous
  Country: US (occurrence: US)
  Receive Date: 20200816
  Receipt Date: 20200831
  Transmission Date: 20201103
  Serious: Yes (Death, Hospitalization, Other)
  Sender: FDA-Public Use
  Company Number: NVSC2020US015747

PATIENT
  Age: 73 Year
  Sex: Female

DRUGS (10)
  1. JAKAFI [Suspect]
     Active Substance: RUXOLITINIB
     Indication: POLYCYTHAEMIA VERA
     Dosage: 20 MG, BID
     Route: 048
     Dates: start: 20191219
  2. PLAVIX [Suspect]
     Active Substance: CLOPIDOGREL BISULFATE
     Route: 065
  3. JAKAFI [Suspect]
     Active Substance: RUXOLITINIB
     Dosage: 20 MG, BID
     Route: 048
     Dates: start: 20191219, end: 202007
  4. VANCOMYCIN HYDROCHLORIDE. [Suspect]
     Active Substance: VANCOMYCIN HYDROCHLORIDE
     Indication: PRODUCT USED FOR UNKNOWN INDICATION
     Route: 065
  5. JAKAFI [Suspect]
     Active Substance: RUXOLITINIB
     Dosage: 20 MG, BID
     Route: 048
     Dates: start: 20191219
  6. JAKAFI [Suspect]
     Active Substance: RUXOLITINIB
     Dosage: 20 MG, BID
     Route: 048
     Dates: start: 20191219
  7. PLAVIX [Suspect]
     Active Substance: CLOPIDOGREL BISULFATE
     Indication: PRODUCT USED FOR UNKNOWN INDICATION
     Dosage: UNK
     Route: 065
  8. XARELTO [Suspect]
     Active Substance: RIVAROXABAN
     Indication: STENT PLACEMENT
     Dosage: 20 MG
     Route: 048
  9. JAKAFI [Suspect]
     Active Substance: RUXOLITINIB
     Dosage: UNK
     Route: 065
     Dates: start: 201912
  10. XARELTO [Suspect]
     Active Substance: RIVAROXABAN
     Dosage: 20 MG
     Route: 065

REACTIONS (26)
  - Cardiovascular disorder [Unknown]
  - Weight bearing difficulty [Unknown]
  - Right atrial dilatation [Unknown]
  - Alanine aminotransferase increased [Not Recovered/Not Resolved]
  - Death [Fatal]
  - Gangrene [Unknown]
  - Product dose omission issue [Unknown]
  - Decreased activity [Unknown]
  - Epistaxis [Recovered/Resolved]
  - Cardiac failure congestive [Unknown]
  - Acute myocardial infarction [Unknown]
  - Chronic kidney disease [Unknown]
  - Blood alkaline phosphatase increased [Not Recovered/Not Resolved]
  - Pulmonary hypertension [Unknown]
  - Cellulitis [Unknown]
  - Immunodeficiency [Unknown]
  - Visual impairment [Unknown]
  - Haematocrit increased [Unknown]
  - Thrombosis [Unknown]
  - Renal failure [Unknown]
  - Aortic dilatation [Unknown]
  - Acute kidney injury [Unknown]
  - Dyskinesia [Recovered/Resolved]
  - Cardiomegaly [Unknown]
  - Poikiloderma [Unknown]
  - Neck pain [Recovered/Resolved]

NARRATIVE: CASE EVENT DATE: 20191231
